FAERS Safety Report 11533029 (Version 4)
Quarter: 2015Q4

REPORT INFORMATION
  Report Type: Spontaneous
  Country: US (occurrence: None)
  Receive Date: 20150921
  Receipt Date: 20151201
  Transmission Date: 20160304
  Serious: Yes (Hospitalization, Other)
  Sender: FDA-Public Use
  Company Number: ADR-2015-01351

PATIENT
  Age: 46 Year
  Sex: Male

DRUGS (2)
  1. BACLOFEN ORAL 20 MG [Suspect]
     Active Substance: BACLOFEN
     Dosage: ? 1 TAB AS NEEDED
  2. BACLOFEN INTRATHECAL 500 MCG/ML [Suspect]
     Active Substance: BACLOFEN
     Indication: MUSCLE SPASTICITY
     Dosage: 57.02 MCG/DAY

REACTIONS (15)
  - Adverse drug reaction [None]
  - Gait disturbance [None]
  - Muscle spasms [None]
  - Performance status decreased [None]
  - Muscular weakness [None]
  - Neuralgia [None]
  - Clonus [None]
  - Secondary progressive multiple sclerosis [None]
  - Burning sensation [None]
  - Back pain [None]
  - Spinal cord injury [None]
  - Pain in extremity [None]
  - Multimorbidity [None]
  - Dysarthria [None]
  - Spinal pain [None]
